FAERS Safety Report 13465882 (Version 3)
Quarter: 2019Q2

REPORT INFORMATION
  Report Type: Report from Study
  Country: CA (occurrence: CA)
  Receive Date: 20170421
  Receipt Date: 20190523
  Transmission Date: 20190711
  Serious: Yes (Hospitalization)
  Sender: FDA-Public Use
  Company Number: CA-ROCHE-ITM201503IM011452

PATIENT
  Age: 76 Year
  Sex: Male
  Weight: 85.6 kg

DRUGS (11)
  1. ESBRIET [Suspect]
     Active Substance: PIRFENIDONE
     Route: 048
  2. NIFEDIPINE. [Concomitant]
     Active Substance: NIFEDIPINE
  3. IRBESARTAN. [Concomitant]
     Active Substance: IRBESARTAN
  4. VITAMIN C [Concomitant]
     Active Substance: ASCORBIC ACID
  5. ESBRIET [Suspect]
     Active Substance: PIRFENIDONE
     Route: 048
     Dates: start: 201503
  6. AMLODIPINE [Concomitant]
     Active Substance: AMLODIPINE BESYLATE
  7. ROSUVASTATIN. [Concomitant]
     Active Substance: ROSUVASTATIN
  8. TYLENOL [Concomitant]
     Active Substance: ACETAMINOPHEN
  9. ESBRIET [Suspect]
     Active Substance: PIRFENIDONE
     Indication: IDIOPATHIC PULMONARY FIBROSIS
     Route: 048
     Dates: start: 20150303
  10. ELTROXIN [Concomitant]
     Active Substance: LEVOTHYROXINE
  11. ASA [Concomitant]
     Active Substance: ASPIRIN

REACTIONS (5)
  - Nasopharyngitis [Not Recovered/Not Resolved]
  - Weight decreased [Unknown]
  - Carbon monoxide diffusing capacity decreased [Unknown]
  - Dyspnoea [Not Recovered/Not Resolved]
  - Pulmonary function test abnormal [Unknown]

NARRATIVE: CASE EVENT DATE: 20150307
